FAERS Safety Report 21539469 (Version 1)
Quarter: 2022Q4

REPORT INFORMATION
  Report Type: Spontaneous
  Country: US (occurrence: US)
  Receive Date: 20221102
  Receipt Date: 20221102
  Transmission Date: 20230112
  Serious: No
  Sender: FDA-Public Use
  Company Number: US-SUN PHARMACEUTICAL INDUSTRIES LTD-2022R1-351628

PATIENT
  Age: 81 Year
  Sex: Female

DRUGS (2)
  1. XELPROS [Suspect]
     Active Substance: LATANOPROST
     Indication: Open angle glaucoma
     Dosage: UNK, 1G++ QHS
     Route: 047
     Dates: start: 20220528, end: 20220603
  2. XELPROS [Suspect]
     Active Substance: LATANOPROST
     Indication: Eye disorder

REACTIONS (2)
  - Eye irritation [Recovered/Resolved]
  - Therapy cessation [Unknown]

NARRATIVE: CASE EVENT DATE: 20220528
